FAERS Safety Report 5063053-6 (Version None)
Quarter: 2006Q3

REPORT INFORMATION
  Report Type: 
  Country: None (occurrence: None)
  Receive Date: 20060724
  Receipt Date: 20060714
  Transmission Date: 20061208
  Serious: Yes (Death, Hospitalization)
  Sender: FDA-Public Use
  Company Number: 2006-07-0793

PATIENT
  Sex: Male

DRUGS (11)
  1. PEG-INTRON [Suspect]
     Indication: VIRAL INFECTION
     Dosage: SUBCUTANEOUS
     Route: 058
  2. RIBAVIRIN [Suspect]
     Indication: VIRAL INFECTION
     Dosage: ORAL
     Route: 048
  3. ALPRAZOLAM [Concomitant]
  4. AMOXICILLIN [Concomitant]
  5. CITALOPRAM HYDROBROMIDE [Concomitant]
  6. CLONAZEPAM [Concomitant]
  7. IBUPROFEN [Concomitant]
  8. MIRTAZAPINE [Concomitant]
  9. TERAZOSIN HCL [Concomitant]
  10. TRAMADOL HCL [Concomitant]
  11. EPOGEN [Concomitant]

REACTIONS (2)
  - ENDOCARDITIS [None]
  - FALL [None]
